FAERS Safety Report 16199014 (Version 1)
Quarter: 2019Q2

REPORT INFORMATION
  Report Type: Spontaneous
  Country: AU (occurrence: AU)
  Receive Date: 20190415
  Receipt Date: 20190415
  Transmission Date: 20190711
  Serious: Yes (Life-Threatening, Hospitalization, Other)
  Sender: FDA-Public Use
  Company Number: AU-JNJFOC-20190423292

PATIENT
  Age: 86 Year
  Sex: Female

DRUGS (1)
  1. XARELTO [Suspect]
     Active Substance: RIVAROXABAN
     Indication: DEEP VEIN THROMBOSIS
     Route: 048

REACTIONS (4)
  - Fall [Not Recovered/Not Resolved]
  - Traumatic fracture [Unknown]
  - Head injury [Unknown]
  - Traumatic intracranial haemorrhage [Not Recovered/Not Resolved]

NARRATIVE: CASE EVENT DATE: 20190306
